FAERS Safety Report 7913448-5 (Version None)
Quarter: 2011Q4

REPORT INFORMATION
  Report Type: 
  Country: None (occurrence: None)
  Receive Date: 20111115
  Receipt Date: 20111104
  Transmission Date: 20120403
  Serious: No
  Sender: FDA-Public Use
  Company Number: US-BIOGENIDEC-2011BI042448

PATIENT
  Age: 37 Year
  Sex: Female

DRUGS (5)
  1. AVONEX [Suspect]
     Route: 030
     Dates: start: 19970101
  2. NAPROXEN (ALEVE) [Concomitant]
     Indication: PREMEDICATION
     Route: 048
  3. AVONEX [Suspect]
     Indication: MULTIPLE SCLEROSIS
     Route: 030
     Dates: start: 19970101, end: 19970101
  4. AVONEX [Suspect]
     Route: 030
  5. AVONEX [Suspect]
     Route: 030
     Dates: start: 19970101, end: 19970101

REACTIONS (5)
  - INFLUENZA LIKE ILLNESS [None]
  - INSOMNIA [None]
  - INJECTION SITE PAIN [None]
  - INJECTION SITE REACTION [None]
  - INJECTION SITE HAEMATOMA [None]
